FAERS Safety Report 10005242 (Version 4)
Quarter: 2014Q2

REPORT INFORMATION
  Report Type: Report from Study
  Country: US (occurrence: US)
  Receive Date: 20140312
  Receipt Date: 20140509
  Transmission Date: 20141212
  Serious: Yes (Life-Threatening, Hospitalization)
  Sender: FDA-Public Use
  Company Number: US-MERCK-1403USA004244

PATIENT
  Age: 75 Year
  Sex: Female
  Weight: 72.12 kg

DRUGS (4)
  1. VORINOSTAT [Suspect]
     Indication: MYELODYSPLASTIC SYNDROME
     Dosage: 300 MG, BID, ON DAYS 3-9
     Route: 048
     Dates: start: 20131120, end: 20131126
  2. VORINOSTAT [Suspect]
     Dosage: 300 MG, BID, ON DAYS 3-9. TOTAL DOSE ADMINISTERED THIS COURSE: 4200 MG.
     Route: 048
     Dates: start: 20140215, end: 20140221
  3. AZACITIDINE [Suspect]
     Indication: MYELODYSPLASTIC SYNDROME
     Dosage: 75 MG/M2, SQ OR IV ON DAYS 1-7 OR ON DAYS 1-5 AND DAYS 8-9
     Dates: start: 20131118
  4. AZACITIDINE [Suspect]
     Dosage: 75 MG/M2, SQ OR IV ON DAYS 1-7 OR ON DAYS 1-5 AND DAYS 8-9. TOTAL DOSE ADMINISTERED THISCOURSE 938MG
     Dates: start: 20140213

REACTIONS (6)
  - Lower gastrointestinal haemorrhage [Recovered/Resolved]
  - Escherichia infection [Recovering/Resolving]
  - Febrile neutropenia [Recovering/Resolving]
  - Abdominal pain [Recovered/Resolved]
  - Haematoma [Recovered/Resolved with Sequelae]
  - Anaemia [Recovered/Resolved with Sequelae]
